FAERS Safety Report 20949688 (Version 1)
Quarter: 2022Q2

REPORT INFORMATION
  Report Type: Spontaneous
  Country: US (occurrence: US)
  Receive Date: 20220613
  Receipt Date: 20220613
  Transmission Date: 20220721
  Serious: Yes (Hospitalization, Other)
  Sender: FDA-Public Use
  Company Number: US-SA-SAC20220609001780

PATIENT
  Age: 60 Year
  Sex: Male

DRUGS (1)
  1. AUBAGIO [Suspect]
     Active Substance: TERIFLUNOMIDE
     Indication: Multiple sclerosis
     Dosage: 14 MG, QD
     Route: 048

REACTIONS (13)
  - Diabetic ulcer [Unknown]
  - Osteomyelitis [Unknown]
  - Multiple sclerosis [Unknown]
  - Foot amputation [Unknown]
  - Muscular weakness [Unknown]
  - Constipation [Unknown]
  - Pain [Unknown]
  - Musculoskeletal stiffness [Unknown]
  - Dysarthria [Unknown]
  - Memory impairment [Unknown]
  - Aphasia [Unknown]
  - Gait disturbance [Unknown]
  - Product dose omission issue [Unknown]

NARRATIVE: CASE EVENT DATE: 20220501
